FAERS Safety Report 13577091 (Version 1)
Quarter: 2017Q2

REPORT INFORMATION
  Report Type: Spontaneous
  Country: SE (occurrence: SE)
  Receive Date: 20170524
  Receipt Date: 20170524
  Transmission Date: 20170830
  Serious: Yes (Other)
  Sender: FDA-Public Use
  Company Number: SE-PFIZER INC-2017221319

PATIENT
  Sex: Female

DRUGS (1)
  1. PROSTINFENEM [Suspect]
     Active Substance: CARBOPROST TROMETHAMINE
     Dosage: UNK
     Route: 030

REACTIONS (3)
  - Electrocardiogram P wave abnormal [Unknown]
  - Drug administered at inappropriate site [Unknown]
  - Circulatory collapse [Unknown]
